FAERS Safety Report 7549403-7 (Version None)
Quarter: 2011Q2

REPORT INFORMATION
  Report Type: 
  Country: None (occurrence: None)
  Receive Date: 20110615
  Receipt Date: 20110531
  Transmission Date: 20111010
  Serious: Yes (Hospitalization, Other)
  Sender: FDA-Public Use
  Company Number: US-BAYER-2011-009709

PATIENT
  Age: 23 Year
  Sex: Female
  Weight: 65.76 kg

DRUGS (9)
  1. YAZ [Suspect]
     Indication: PREMENSTRUAL SYNDROME
  2. YAZ [Suspect]
     Indication: CONTRACEPTION
     Dosage: UNK
     Dates: start: 20081027, end: 20090130
  3. FLONASE [Concomitant]
     Dosage: 0.5 MG, QD
     Route: 045
  4. YAZ [Suspect]
  5. CLARAVIS [Concomitant]
     Dosage: 40 MG, UNK
     Route: 048
     Dates: start: 20081001, end: 20081201
  6. ALLEGRA-D 12 HOUR [Concomitant]
     Route: 048
  7. PRENATAL VITAMINS [VIT C,B5,B12,D2,B3,B6,RETINOL PALMIT,B2,B1 MONONITR [Concomitant]
  8. SOLVASA [Concomitant]
  9. ACCUTANE [Concomitant]
     Dosage: UNK
     Dates: start: 20080901, end: 20090130

REACTIONS (2)
  - DEEP VEIN THROMBOSIS [None]
  - PULMONARY EMBOLISM [None]
